FAERS Safety Report 4350083-2 (Version None)
Quarter: 2004Q2

REPORT INFORMATION
  Report Type: 
  Country: None (occurrence: None)
  Receive Date: 20040429
  Receipt Date: 20040420
  Transmission Date: 20050107
  Serious: Yes (Hospitalization)
  Sender: FDA-Public Use
  Company Number: JP-BRISTOL-MYERS SQUIBB COMPANY-12564761

PATIENT
  Age: 62 Year
  Sex: Male

DRUGS (3)
  1. PARAPLATIN [Suspect]
     Indication: OROPHARYNGEAL CANCER STAGE UNSPECIFIED
     Dosage: CYCLE 1 DOSE 320MG
     Route: 042
     Dates: start: 20011120, end: 20011120
  2. DOCETAXEL [Suspect]
     Indication: OROPHARYNGEAL CANCER STAGE UNSPECIFIED
     Dosage: CYCLE 1 DOSE 28 MG
     Route: 042
     Dates: start: 20011120, end: 20011120
  3. RADIOTHERAPY [Suspect]
     Indication: OROPHARYNGEAL CANCER STAGE UNSPECIFIED
     Dates: start: 20011031, end: 20011220

REACTIONS (7)
  - CANDIDIASIS [None]
  - PHARYNGEAL ULCERATION [None]
  - PHARYNGITIS [None]
  - PNEUMONIA [None]
  - RADIATION INJURY [None]
  - RADIATION MUCOSITIS [None]
  - RADIATION SKIN INJURY [None]
